FAERS Safety Report 11603099 (Version 1)
Quarter: 2015Q4

REPORT INFORMATION
  Report Type: Spontaneous
  Country: US (occurrence: None)
  Receive Date: 20151005
  Receipt Date: 20151005
  Transmission Date: 20160304
  Serious: Yes (Disabling)
  Sender: FDA-Public Use
  Company Number: None

PATIENT
  Age: 63 Year
  Sex: Male
  Weight: 81.65 kg

DRUGS (10)
  1. TESTOSTERONE GEL [Suspect]
     Active Substance: TESTOSTERONE
     Indication: FATIGUE
     Dosage: APPLIED TO A SURFACE USUALLY THE SKIN
     Route: 048
     Dates: start: 20150717, end: 20150917
  2. ORPHENDRINE [Concomitant]
  3. COENZYME Q10 [Concomitant]
     Active Substance: UBIDECARENONE
  4. TIZANIDINE. [Concomitant]
     Active Substance: TIZANIDINE
  5. LIPITOR [Concomitant]
     Active Substance: ATORVASTATIN CALCIUM
  6. FISH OIL [Concomitant]
     Active Substance: FISH OIL
  7. TESTOSTERONE GEL [Suspect]
     Active Substance: TESTOSTERONE
     Indication: LETHARGY
     Dosage: APPLIED TO A SURFACE USUALLY THE SKIN
     Route: 048
     Dates: start: 20150717, end: 20150917
  8. TESTOSTERONE GEL [Suspect]
     Active Substance: TESTOSTERONE
     Indication: ASTHENIA
     Dosage: APPLIED TO A SURFACE USUALLY THE SKIN
     Route: 048
     Dates: start: 20150717, end: 20150917
  9. LISINOPRIL. [Concomitant]
     Active Substance: LISINOPRIL
  10. TESTOSTERONE GEL [Suspect]
     Active Substance: TESTOSTERONE
     Indication: BLOOD TESTOSTERONE DECREASED
     Dosage: APPLIED TO A SURFACE USUALLY THE SKIN
     Route: 048
     Dates: start: 20150717, end: 20150917

REACTIONS (4)
  - Product substitution issue [None]
  - Condition aggravated [None]
  - Product quality issue [None]
  - Drug ineffective [None]

NARRATIVE: CASE EVENT DATE: 20150917
